FAERS Safety Report 24038654 (Version 8)
Quarter: 2025Q1

REPORT INFORMATION
  Report Type: Report from Study
  Country: US (occurrence: US)
  Receive Date: 20240702
  Receipt Date: 20250303
  Transmission Date: 20250409
  Serious: Yes (Other)
  Sender: TAKEDA
  Company Number: US-TAKEDA-2024TUS042147

PATIENT
  Sex: Female
  Weight: 102 kg

DRUGS (24)
  1. HUMAN IMMUNOGLOBULIN G [Suspect]
     Active Substance: HUMAN IMMUNOGLOBULIN G
     Indication: Immunodeficiency common variable
     Dosage: 10 GRAM, 1/WEEK
     Dates: start: 20240417
  2. HUMAN IMMUNOGLOBULIN G [Suspect]
     Active Substance: HUMAN IMMUNOGLOBULIN G
     Dosage: 12.5 GRAM, 1/WEEK
  3. VYVANSE [Suspect]
     Active Substance: LISDEXAMFETAMINE DIMESYLATE
     Indication: Product used for unknown indication
  4. EPINEPHRINE [Concomitant]
     Active Substance: EPINEPHRINE
  5. ACETAMINOPHEN [Concomitant]
     Active Substance: ACETAMINOPHEN
  6. INJECTAFER [Concomitant]
     Active Substance: FERRIC CARBOXYMALTOSE
  7. TYLENOL EXTRA STRENGTH [Concomitant]
     Active Substance: ACETAMINOPHEN
  8. ASPIRIN [Concomitant]
     Active Substance: ASPIRIN
  9. MORPHINE SULFATE [Concomitant]
     Active Substance: MORPHINE SULFATE
  10. LIDOCAINE [Concomitant]
     Active Substance: LIDOCAINE
  11. SYMBICORT [Concomitant]
     Active Substance: BUDESONIDE\FORMOTEROL FUMARATE DIHYDRATE
  12. IBUPROFEN [Concomitant]
     Active Substance: IBUPROFEN
  13. PREDNISONE [Concomitant]
     Active Substance: PREDNISONE
  14. DIPHENHYDRAMINE HYDROCHLORIDE [Concomitant]
     Active Substance: DIPHENHYDRAMINE HYDROCHLORIDE
  15. VITAMIN D3 [Concomitant]
     Active Substance: CHOLECALCIFEROL
  16. CELEXA [Concomitant]
     Active Substance: CITALOPRAM HYDROBROMIDE
  17. HYDROXYZINE HYDROCHLORIDE [Concomitant]
     Active Substance: HYDROXYZINE HYDROCHLORIDE
  18. XOPENEX HFA [Concomitant]
     Active Substance: LEVALBUTEROL TARTRATE
  19. NP THYROID [Concomitant]
     Active Substance: LEVOTHYROXINE\LIOTHYRONINE
  20. XYZAL [Concomitant]
     Active Substance: LEVOCETIRIZINE DIHYDROCHLORIDE
  21. LYRICA [Concomitant]
     Active Substance: PREGABALIN
  22. ESTRADIOL [Concomitant]
     Active Substance: ESTRADIOL
     Dosage: UNK UNK, 1/WEEK
  23. PROGESTERONE [Concomitant]
     Active Substance: PROGESTERONE
  24. ASPIRIN [Concomitant]
     Active Substance: ASPIRIN

REACTIONS (24)
  - Pneumonia [Unknown]
  - Infusion site discharge [Unknown]
  - Dehydration [Unknown]
  - Memory impairment [Unknown]
  - Abdominal hernia [Unknown]
  - Inappropriate schedule of product administration [Unknown]
  - Gastroenteritis viral [Unknown]
  - Ear infection [Unknown]
  - Pollakiuria [Unknown]
  - Device infusion issue [Unknown]
  - Respiratory syncytial virus infection [Unknown]
  - Depression [Unknown]
  - Product adhesion issue [Unknown]
  - Full blood count decreased [Unknown]
  - Illness [Unknown]
  - Sinusitis [Not Recovered/Not Resolved]
  - Infusion site haemorrhage [Unknown]
  - Feeling abnormal [Unknown]
  - Asthma [Unknown]
  - White blood cell count decreased [Unknown]
  - Infusion site bruising [Unknown]
  - Infusion site pain [Unknown]
  - Urticaria [Recovering/Resolving]
  - Headache [Unknown]
